FAERS Safety Report 17011790 (Version 1)
Quarter: 2019Q4

REPORT INFORMATION
  Report Type: Spontaneous
  Country: PT (occurrence: PT)
  Receive Date: 20191108
  Receipt Date: 20191108
  Transmission Date: 20200122
  Serious: Yes (Hospitalization, Other)
  Sender: FDA-Public Use
  Company Number: PT-009507513-1911PRT000266

PATIENT
  Age: 33 Year
  Sex: Female

DRUGS (4)
  1. IMPLANON NXT [Suspect]
     Active Substance: ETONOGESTREL
     Dosage: 1 IMPLANT
     Route: 059
     Dates: start: 201810, end: 201910
  2. PREGABALIN. [Concomitant]
     Active Substance: PREGABALIN
  3. LEVETIRACETAM. [Concomitant]
     Active Substance: LEVETIRACETAM
  4. CARBAMAZEPINE. [Concomitant]
     Active Substance: CARBAMAZEPINE
     Indication: EPILEPSY

REACTIONS (7)
  - Tubal rupture [Recovering/Resolving]
  - Pregnancy with contraceptive device [Recovered/Resolved]
  - Ectopic pregnancy [Recovering/Resolving]
  - Unintended pregnancy [Recovered/Resolved]
  - Drug interaction [Unknown]
  - Peritoneal haemorrhage [Recovering/Resolving]
  - Heterotopic pregnancy [Recovering/Resolving]

NARRATIVE: CASE EVENT DATE: 201810
